FAERS Safety Report 5304198-2 (Version None)
Quarter: 2007Q2

REPORT INFORMATION
  Report Type: 
  Country: None (occurrence: None)
  Receive Date: 20070423
  Receipt Date: 20070410
  Transmission Date: 20071010
  Serious: Yes (Hospitalization, Other)
  Sender: FDA-Public Use
  Company Number: PHEH2007US04936

PATIENT
  Age: 38 Year
  Sex: Female

DRUGS (11)
  1. LIPITOR [Concomitant]
     Indication: BLOOD CHOLESTEROL INCREASED
  2. METOPROLOL SUCCINATE [Concomitant]
  3. PLAVIX [Concomitant]
  4. ASPIRIN [Concomitant]
     Dosage: 81 MG, UNK
  5. LISINOPRIL [Concomitant]
     Indication: HYPERTENSION
  6. WELLBUTRIN [Concomitant]
  7. PROZAC [Concomitant]
  8. DIAZEPAM [Concomitant]
  9. BUSPAR [Concomitant]
  10. ABILIFY [Concomitant]
  11. ZELNORM [Suspect]
     Indication: IRRITABLE BOWEL SYNDROME
     Dosage: 6 MG, BID
     Route: 048
     Dates: start: 20050321, end: 20070410

REACTIONS (6)
  - CHEST PAIN [None]
  - CHOLECYSTECTOMY [None]
  - CHOLELITHIASIS [None]
  - ENDOMETRIOSIS [None]
  - HYPOTENSION [None]
  - HYSTERECTOMY [None]
